FAERS Safety Report 11710836 (Version 1)
Quarter: 2015Q4

REPORT INFORMATION
  Report Type: Spontaneous
  Country: US (occurrence: US)
  Receive Date: 20151104
  Receipt Date: 20151104
  Transmission Date: 20160304
  Serious: No
  Sender: FDA-Public Use
  Company Number: US-ELI_LILLY_AND_COMPANY-US201104007134

PATIENT
  Age: 65 Year
  Sex: Female

DRUGS (3)
  1. CORTICOSTEROIDS [Concomitant]
     Active Substance: CORTICOSTEROID NOS
     Indication: SYSTEMIC LUPUS ERYTHEMATOSUS
  2. RECLAST [Concomitant]
     Active Substance: ZOLEDRONIC ACID
     Dosage: UNK
     Dates: start: 201103
  3. FORTEO [Suspect]
     Active Substance: TERIPARATIDE
     Dosage: UNK, UNKNOWN
     Route: 065
     Dates: start: 200701, end: 200807

REACTIONS (2)
  - Fracture [Unknown]
  - Back pain [Unknown]

NARRATIVE: CASE EVENT DATE: 201102
